FAERS Safety Report 10102956 (Version 1)
Quarter: 2014Q2

REPORT INFORMATION
  Report Type: Spontaneous
  Country: US (occurrence: US)
  Receive Date: 20140424
  Receipt Date: 20140424
  Transmission Date: 20141212
  Serious: No
  Sender: FDA-Public Use
  Company Number: US-BRISTOL-MYERS SQUIBB COMPANY-19990845

PATIENT
  Age: 70 Year
  Sex: Female

DRUGS (3)
  1. ELIQUIS [Suspect]
     Indication: ATRIAL FIBRILLATION
  2. PROPRANOLOL [Suspect]
  3. METOPROLOL SR [Suspect]
     Dosage: 1 DF=100 MG ;

REACTIONS (1)
  - Rash pruritic [Not Recovered/Not Resolved]
